FAERS Safety Report 15104663 (Version 1)
Quarter: 2018Q3

REPORT INFORMATION
  Report Type: Spontaneous
  Country: US (occurrence: US)
  Receive Date: 20180703
  Receipt Date: 20180703
  Transmission Date: 20181010
  Serious: No
  Sender: FDA-Public Use
  Company Number: US-BAUSCH-BL-2017-021482

PATIENT
  Age: 61 Year
  Sex: Female

DRUGS (2)
  1. BESIVANCE [Suspect]
     Active Substance: BESIFLOXACIN
     Indication: POSTOPERATIVE CARE
     Dosage: 1 DROP IN THE AFFECTED EYE AFTER HER CATARACT SURGERY IN HER RIGHT EYE
     Route: 047
     Dates: start: 201706
  2. BESIVANCE [Suspect]
     Active Substance: BESIFLOXACIN
     Dosage: IN HER LEFT EYE AFTER HER CATARACT SURGERY.
     Route: 047
     Dates: start: 20170712

REACTIONS (3)
  - Off label use [Not Recovered/Not Resolved]
  - Medication residue present [Not Recovered/Not Resolved]
  - Product physical consistency issue [Not Recovered/Not Resolved]

NARRATIVE: CASE EVENT DATE: 201706
